FAERS Safety Report 5019339-4 (Version None)
Quarter: 2006Q2

REPORT INFORMATION
  Report Type: 
  Country: None (occurrence: None)
  Receive Date: 20060531
  Receipt Date: 20060512
  Transmission Date: 20061013
  Serious: No
  Sender: FDA-Public Use
  Company Number: 225601

PATIENT
  Age: 50 Year
  Sex: Female

DRUGS (1)
  1. HERCEPTIN [Suspect]
     Dosage: Q3W, INTRAVENOUS
     Route: 042

REACTIONS (4)
  - NASAL MUCOSAL DISORDER [None]
  - ORAL MUCOSAL DISORDER [None]
  - SKIN REACTION [None]
  - URINARY TRACT DISORDER [None]
